FAERS Safety Report 8842378 (Version 3)
Quarter: 2013Q1

REPORT INFORMATION
  Report Type: Spontaneous
  Country: US (occurrence: US)
  Receive Date: 20121016
  Receipt Date: 20130129
  Transmission Date: 20140127
  Serious: Yes (Death, Hospitalization)
  Sender: FDA-Public Use
  Company Number: US-CELGENEUS-163-21880-12101570

PATIENT
  Age: 58 Year
  Sex: Male
  Weight: 90.35 kg

DRUGS (17)
  1. REVLIMID [Suspect]
     Indication: PLASMA CELL MYELOMA
     Dosage: 15 MILLIGRAM
     Route: 048
     Dates: start: 200705, end: 200802
  2. REVLIMID [Suspect]
     Dosage: 10 MILLIGRAM
     Route: 048
     Dates: start: 200802, end: 200805
  3. REVLIMID [Suspect]
     Dosage: 10MG-15 MG-5MG
     Route: 048
     Dates: start: 200903, end: 201010
  4. REVLIMID [Suspect]
     Dosage: 10 MILLIGRAM
     Route: 048
     Dates: start: 201206, end: 2012
  5. ANTIBIOTICS [Concomitant]
     Indication: PNEUMONIA
     Route: 041
     Dates: start: 201206
  6. ANTIFUNGALS [Concomitant]
     Indication: PNEUMONIA
     Route: 041
     Dates: start: 201206
  7. VITAMIN K [Concomitant]
     Indication: PRODUCT USED FOR UNKNOWN INDICATION
     Route: 065
  8. AMITRIPTYLINE [Concomitant]
     Indication: PRODUCT USED FOR UNKNOWN INDICATION
     Dosage: 40 MILLIGRAM
     Route: 065
  9. OXYCODONE [Concomitant]
     Indication: PRODUCT USED FOR UNKNOWN INDICATION
     Dosage: 5-10MG
     Route: 065
  10. FENTANYL [Concomitant]
     Indication: PRODUCT USED FOR UNKNOWN INDICATION
     Dosage: 75 MICROGRAM
     Route: 065
  11. FENTANYL [Concomitant]
     Dosage: 25 MICROGRAM
     Route: 062
     Dates: start: 201207
  12. COUMADIN [Concomitant]
     Indication: PRODUCT USED FOR UNKNOWN INDICATION
     Route: 065
  13. OXYCONTIN [Concomitant]
     Indication: PRODUCT USED FOR UNKNOWN INDICATION
     Dosage: 100 MILLIGRAM
     Route: 065
  14. OXYCONTIN [Concomitant]
     Route: 065
  15. VELCADE [Concomitant]
     Indication: PLASMA CELL MYELOMA
     Route: 065
     Dates: start: 201206
  16. DEXAMETHASONE [Concomitant]
     Indication: PLASMA CELL MYELOMA
     Route: 065
     Dates: start: 201206
  17. ZOMETA [Concomitant]
     Indication: PRODUCT USED FOR UNKNOWN INDICATION
     Route: 041
     Dates: start: 201207

REACTIONS (2)
  - Plasma cell myeloma [Fatal]
  - Pancytopenia [Unknown]
